FAERS Safety Report 4525128-7 (Version None)
Quarter: 2004Q4

REPORT INFORMATION
  Report Type: 
  Country: None (occurrence: None)
  Receive Date: 20041117
  Receipt Date: 20031226
  Transmission Date: 20050328
  Serious: Yes (Other)
  Sender: FDA-Public Use
  Company Number: C2003-3362.01

PATIENT
  Age: 68 Year
  Sex: Female

DRUGS (11)
  1. CLOZAPINE [Suspect]
     Indication: SCHIZOPHRENIA
     Dosage: 100MG HS, ORAL
     Route: 048
     Dates: start: 20031030, end: 20031226
  2. CLOZAPINE [Suspect]
     Indication: SCHIZOPHRENIA
     Dosage: 100MG HS, ORAL
     Route: 048
     Dates: start: 20031230, end: 20040115
  3. CLOZAPINE [Suspect]
     Indication: SCHIZOPHRENIA
     Dosage: 100MG HS, ORAL
     Route: 048
     Dates: start: 20040119
  4. CLOZAPINE [Suspect]
     Indication: SCHIZOPHRENIA
     Dosage: 100MG HS, ORAL
     Route: 048
     Dates: start: 20040126
  5. FENTANYL [Concomitant]
  6. FERROUS SULFATE TAB [Concomitant]
  7. HYDROCODONE/ACETAMINOPHEN [Concomitant]
  8. LACTULOSE [Concomitant]
  9. LEVETIRACETAM [Concomitant]
  10. LEVOTHYROXINE SODIUM [Concomitant]
  11. VITAMIN E [Concomitant]

REACTIONS (1)
  - LEUKOPENIA [None]
